FAERS Safety Report 4375968-2 (Version None)
Quarter: 2004Q2

REPORT INFORMATION
  Report Type: 
  Country: None (occurrence: None)
  Receive Date: 20040607
  Receipt Date: 20040525
  Transmission Date: 20050107
  Serious: Yes (Other)
  Sender: FDA-Public Use
  Company Number: 2004-ES-00118ES

PATIENT
  Age: 70 Year
  Sex: Male

DRUGS (4)
  1. UROLOSIN (TAMSULOSIN) (KA) (TAMSULOSIN HYDROCHLORIDE) [Suspect]
     Indication: BENIGN PROSTATIC HYPERPLASIA
     Dosage: 0.4 MG (0.4 MG) PO
     Route: 048
     Dates: start: 20040201, end: 20040214
  2. ALOPURINOL (ALLOPURINOL) (NR) [Concomitant]
  3. TORASEMIDE (TORASEMIDE) (NR) [Concomitant]
  4. TELMISARTAN (TELMISARTAN) (NR) [Concomitant]

REACTIONS (5)
  - DIZZINESS [None]
  - OEDEMA MUCOSAL [None]
  - PRURITUS GENERALISED [None]
  - STOMATITIS [None]
  - SWELLING FACE [None]
